FAERS Safety Report 11222386 (Version 2)
Quarter: 2018Q3

REPORT INFORMATION
  Report Type: Spontaneous
  Country: DE (occurrence: DE)
  Receive Date: 20150626
  Receipt Date: 20180830
  Transmission Date: 20181010
  Serious: Yes (Hospitalization, Other)
  Sender: FDA-Public Use
  Company Number: PHHY2015DE074864

PATIENT
  Age: 78 Year
  Sex: Male

DRUGS (1)
  1. METHOTREXATE. [Suspect]
     Active Substance: METHOTREXATE
     Indication: RHEUMATOID ARTHRITIS
     Dosage: 10 MG, QD (40 MG IN TOTAL)
     Route: 048

REACTIONS (9)
  - Pancytopenia [Recovered/Resolved]
  - Medication error [Recovered/Resolved]
  - Oesophagitis [Recovered/Resolved]
  - Cystitis haemorrhagic [Recovered/Resolved]
  - Gastrointestinal haemorrhage [Recovered/Resolved]
  - Pneumonia [Recovered/Resolved]
  - Inappropriate schedule of drug administration [Unknown]
  - Mucosal inflammation [Recovered/Resolved]
  - Accidental overdose [Unknown]
